FAERS Safety Report 16649410 (Version 1)
Quarter: 2019Q3

REPORT INFORMATION
  Report Type: Spontaneous
  Country: US (occurrence: US)
  Receive Date: 20190617
  Receipt Date: 20190617
  Transmission Date: 20191004
  Serious: No
  Sender: FDA-Public Use
  Company Number: None

PATIENT

DRUGS (1)
  1. ORACIT [Suspect]
     Active Substance: CITRIC ACID, 1-STEARYL ESTER\SODIUM CITRATE
     Route: 048

REACTIONS (2)
  - Product label confusion [None]
  - Intercepted product dispensing error [None]
